FAERS Safety Report 8078224-4 (Version None)
Quarter: 2012Q1

REPORT INFORMATION
  Report Type: 
  Country: None (occurrence: None)
  Receive Date: 20120123
  Receipt Date: 20120109
  Transmission Date: 20120608
  Serious: Yes (Death)
  Sender: FDA-Public Use
  Company Number: JPI-P-007079

PATIENT
  Age: 65 Year
  Sex: Female

DRUGS (9)
  1. OPIOIDS [Suspect]
     Indication: PRODUCT USED FOR UNKNOWN INDICATION
     Dates: end: 20090419
  2. BENZODIAZEPINES [Suspect]
     Indication: PRODUCT USED FOR UNKNOWN INDICATION
     Dates: end: 20090419
  3. UNSPECIFIED ANTIEPILEPTIC [Suspect]
     Indication: PRODUCT USED FOR UNKNOWN INDICATION
     Dates: end: 20090419
  4. UNSPECIFIED SEDATIVE-HYPNOTIC [Suspect]
     Indication: PRODUCT USED FOR UNKNOWN INDICATION
     Dates: end: 20090419
  5. UNSPECIFIED ANTIPARKINSONISM [Suspect]
     Indication: PRODUCT USED FOR UNKNOWN INDICATION
     Dates: end: 20090419
  6. PSYCHODYSLEPTICS [Suspect]
     Indication: PRODUCT USED FOR UNKNOWN INDICATION
     Dates: end: 20090419
  7. UNSPECIFIED DRUGS, MEDICAMENTS, AND BIOLOGICAL SUBSTANCES [Suspect]
     Indication: PRODUCT USED FOR UNKNOWN INDICATION
     Dates: end: 20090419
  8. XYREM [Suspect]
     Indication: FIBROMYALGIA
     Dosage: 6 GM (3 GM,2 IN 1 D),ORAL
     Route: 048
     Dates: start: 20050519, end: 20090419
  9. NARCOTICS [Suspect]
     Indication: PRODUCT USED FOR UNKNOWN INDICATION
     Dates: end: 20090419

REACTIONS (2)
  - ACCIDENTAL POISONING [None]
  - TOXICITY TO VARIOUS AGENTS [None]
